FAERS Safety Report 6039536-9 (Version None)
Quarter: 2009Q1

REPORT INFORMATION
  Report Type: 
  Country: None (occurrence: None)
  Receive Date: 20090116
  Receipt Date: 20090109
  Transmission Date: 20090719
  Serious: Yes (Other)
  Sender: FDA-Public Use
  Company Number: US-ASTRAZENECA-2009UW00769

PATIENT
  Age: 77 Year
  Sex: Male
  Weight: 88.5 kg

DRUGS (10)
  1. CRESTOR [Suspect]
     Indication: BLOOD CHOLESTEROL INCREASED
     Route: 048
  2. LOVENOKNOX [Concomitant]
  3. COUMADIN [Concomitant]
  4. LISINOPRIL [Concomitant]
  5. ASPIRIN [Concomitant]
  6. ZETIA [Concomitant]
  7. NIOSPAN [Concomitant]
  8. OMEPRESLONE [Concomitant]
  9. BUTERAL [Concomitant]
  10. FISH OIL [Concomitant]

REACTIONS (1)
  - THROMBOSIS [None]
